FAERS Safety Report 24171402 (Version 1)
Quarter: 2024Q3

REPORT INFORMATION
  Report Type: Spontaneous
  Country: US (occurrence: US)
  Receive Date: 20240805
  Receipt Date: 20240805
  Transmission Date: 20241017
  Serious: No
  Sender: RANBAXY
  Company Number: US-SUN PHARMACEUTICAL INDUSTRIES LTD-2024R1-441307

PATIENT
  Sex: Male

DRUGS (1)
  1. ODOMZO [Suspect]
     Active Substance: SONIDEGIB
     Indication: Basal cell carcinoma
     Dosage: UNK (ONE CAPSULE BY MOUTH AS DIRECTED)
     Route: 048
     Dates: start: 20240109, end: 20240306

REACTIONS (2)
  - Muscle spasms [Unknown]
  - Anosmia [Unknown]
